FAERS Safety Report 10521059 (Version 1)
Quarter: 2014Q4

REPORT INFORMATION
  Report Type: Spontaneous
  Country: US (occurrence: US)
  Receive Date: 20141016
  Receipt Date: 20141016
  Transmission Date: 20150528
  Serious: Yes (Death)
  Sender: FDA-Public Use
  Company Number: US-UNITED THERAPEUTICS-UNT-2014-009157

PATIENT
  Age: 57 Year
  Sex: Male
  Weight: 62.59 kg

DRUGS (1)
  1. REMODULIN [Suspect]
     Active Substance: TREPROSTINIL
     Indication: COR PULMONALE CHRONIC
     Dosage: 0.070 ?G/KG, CONTINUING
     Route: 058
     Dates: start: 20140228

REACTIONS (1)
  - Death [Fatal]

NARRATIVE: CASE EVENT DATE: 20141008
